FAERS Safety Report 7456575-1 (Version None)
Quarter: 2011Q2

REPORT INFORMATION
  Report Type: 
  Country: None (occurrence: None)
  Receive Date: 20110503
  Receipt Date: 20110202
  Transmission Date: 20111010
  Serious: Yes (Other)
  Sender: FDA-Public Use
  Company Number: PHHY2011TZ17818

PATIENT

DRUGS (5)
  1. AMOXICILLIN [Concomitant]
     Indication: URINARY TRACT INFECTION
     Dosage: UNK
     Route: 064
     Dates: start: 20090618, end: 20090623
  2. ACETAMINOPHEN [Concomitant]
     Indication: PYREXIA
     Dosage: UNK
     Route: 064
     Dates: start: 20090618, end: 20090621
  3. ARTEMETHER,BENFLUMETOL [Suspect]
     Indication: MALARIA
     Dosage: 4
     Route: 064
     Dates: start: 20090618, end: 20090621
  4. MEBENDAZOLE [Concomitant]
     Indication: HELMINTHIC INFECTION
     Dosage: 1 STAT
     Route: 064
  5. FERROSULFAT [Concomitant]
     Indication: ANAEMIA
     Dosage: UNK
     Route: 064
     Dates: start: 20090618, end: 20090621

REACTIONS (2)
  - PREMATURE BABY [None]
  - DRUG EXPOSURE DURING PREGNANCY [None]
